FAERS Safety Report 9393921 (Version 2)
Quarter: 2013Q3

REPORT INFORMATION
  Report Type: Spontaneous
  Country: FR (occurrence: FR)
  Receive Date: 20130710
  Receipt Date: 20130717
  Transmission Date: 20140515
  Serious: Yes (Hospitalization)
  Sender: FDA-Public Use
  Company Number: FR-009507513-1307FRA000448

PATIENT
  Age: 74 Year
  Sex: Female

DRUGS (8)
  1. EMEND [Suspect]
     Indication: PROPHYLAXIS OF NAUSEA AND VOMITING
     Dosage: 125 MG, ONCE
     Route: 048
     Dates: start: 20130522, end: 20130522
  2. EMEND [Suspect]
     Dosage: 80 MG, ONCE
     Route: 048
     Dates: start: 20130523, end: 20130523
  3. EMEND [Suspect]
     Dosage: 80 MG, ONCE
     Route: 048
     Dates: start: 20130524, end: 20130524
  4. CISPLATIN MERCK [Suspect]
     Indication: NEOPLASM MALIGNANT
     Dosage: 130 MG, ONCE
     Route: 042
     Dates: start: 20130522, end: 20130522
  5. ONDANSETRON [Suspect]
     Indication: PROPHYLAXIS OF NAUSEA AND VOMITING
     Dosage: 16 MG, ONCE
     Route: 042
     Dates: start: 20130522, end: 20130522
  6. PRIMPERAN [Suspect]
     Indication: PROPHYLAXIS OF NAUSEA AND VOMITING
     Dosage: 20 MG, BID
     Route: 042
     Dates: start: 20130522, end: 20130522
  7. SOLUPRED [Suspect]
     Indication: PREMEDICATION
     Dosage: 60 MG, QD
     Route: 048
     Dates: start: 20130523, end: 20130525
  8. METHYLPREDNISOLONE MYLAN [Suspect]
     Indication: PREMEDICATION
     Dosage: 120 MG, ONCE
     Route: 042
     Dates: start: 20130522, end: 20130522

REACTIONS (1)
  - Hepatocellular injury [Recovered/Resolved]
